FAERS Safety Report 14328713 (Version 1)
Quarter: 2017Q4

REPORT INFORMATION
  Report Type: Spontaneous
  Country: US (occurrence: US)
  Receive Date: 20171227
  Receipt Date: 20171227
  Transmission Date: 20180321
  Serious: No
  Sender: FDA-Public Use
  Company Number: US-SUNOVION-2017SUN005277

PATIENT
  Sex: Female
  Weight: 58.96 kg

DRUGS (4)
  1. XOPENEX [Suspect]
     Active Substance: LEVALBUTEROL HYDROCHLORIDE
     Indication: ASTHMA
     Dosage: 2 PUFFS, AS NECESSARY
     Route: 055
  2. LEVALBUTEROL. [Concomitant]
     Active Substance: LEVALBUTEROL
     Indication: ASTHMA
     Dosage: UNK (X 6 DOSES), QD
     Route: 055
     Dates: start: 201712
  3. XOPENEX [Suspect]
     Active Substance: LEVALBUTEROL HYDROCHLORIDE
     Dosage: UNK, QD
     Route: 055
  4. LEVALBUTEROL. [Concomitant]
     Active Substance: LEVALBUTEROL
     Dosage: UNK

REACTIONS (1)
  - Drug ineffective for unapproved indication [Unknown]
